FAERS Safety Report 5887352-0 (Version None)
Quarter: 2008Q3

REPORT INFORMATION
  Report Type: 
  Country: None (occurrence: None)
  Receive Date: 20080915
  Receipt Date: 20080905
  Transmission Date: 20090109
  Serious: Yes (Hospitalization)
  Sender: FDA-Public Use
  Company Number: ADR2012008

PATIENT
  Age: 50 Year
  Sex: Female

DRUGS (12)
  1. METFORMIN HCL [Suspect]
     Indication: DIABETES MELLITUS
  2. CELECOXIB [Concomitant]
  3. LEVOTHYROXINE SODIUM [Concomitant]
  4. ACETAMINOPHEN AND CODEINE PHOSPHATE [Concomitant]
  5. ASPIRIN (81 MG/DAY) [Concomitant]
  6. SIMVASTATIN [Concomitant]
  7. OMEPRAZOLE [Concomitant]
  8. PREGABALIN [Concomitant]
  9. TIZANIDINE HCL [Concomitant]
  10. CANDESARTAN [Concomitant]
  11. HYDROCHLOROTHIAZIDE [Concomitant]
  12. ARIPIPRAZOLE [Concomitant]

REACTIONS (8)
  - ABDOMINAL PAIN [None]
  - AZOTAEMIA [None]
  - HAEMODIALYSIS [None]
  - HYPERKALAEMIA [None]
  - LACTIC ACIDOSIS [None]
  - PANCREATITIS ACUTE [None]
  - PROTEINURIA [None]
  - RENAL INJURY [None]
